FAERS Safety Report 18495291 (Version 2)
Quarter: 2020Q4

REPORT INFORMATION
  Report Type: Report from Study
  Country: DE (occurrence: DE)
  Receive Date: 20201112
  Receipt Date: 20201211
  Transmission Date: 20210114
  Serious: Yes (Hospitalization)
  Sender: FDA-Public Use
  Company Number: DE-TEVA-2020-DE-1847864

PATIENT
  Sex: Male

DRUGS (2)
  1. CELECOXIB. [Suspect]
     Active Substance: CELECOXIB
     Indication: AXIAL SPONDYLOARTHRITIS
     Dosage: USAGE: 4 TIMES PER WEEK (4XW)
     Route: 065
     Dates: start: 20000101
  2. HULIO [Suspect]
     Active Substance: ADALIMUMAB-FKJP
     Indication: AXIAL SPONDYLOARTHRITIS
     Dosage: USAGE: ONCE EVERY 2 WEEKS (Q2W)
     Route: 065
     Dates: start: 20200428

REACTIONS (2)
  - Hiatus hernia [Recovered/Resolved]
  - Oesophagogastric fundoplasty [Recovered/Resolved]
